FAERS Safety Report 10221515 (Version 3)
Quarter: 2015Q2

REPORT INFORMATION
  Report Type: Report from Study
  Country: JP (occurrence: JP)
  Receive Date: 20140606
  Receipt Date: 20150408
  Transmission Date: 20150821
  Serious: Yes (Hospitalization)
  Sender: FDA-Public Use
  Company Number: JP-SA-THYM-1004055

PATIENT
  Age: 3 Year
  Sex: Female
  Weight: 11.5 kg

DRUGS (12)
  1. SOL-MELCORT [Suspect]
     Active Substance: METHYLPREDNISOLONE SODIUM SUCCINATE
     Indication: PROPHYLAXIS
     Dosage: UNK
     Route: 065
     Dates: start: 20120616, end: 20120617
  2. CARBENIN [Concomitant]
     Active Substance: BETAMIPRON\PANIPENEM
     Indication: INFECTION PROPHYLAXIS
     Dosage: UNK
     Dates: start: 20120616, end: 20120624
  3. ACICLOVIR [Concomitant]
     Active Substance: ACYCLOVIR
     Indication: INFECTION PROPHYLAXIS
     Dosage: UNK
     Dates: start: 20120616, end: 20120713
  4. ORGARAN [Concomitant]
     Active Substance: DANAPAROID SODIUM
     Indication: PROPHYLAXIS
     Dates: start: 20120611, end: 20120718
  5. TACROLIMUS. [Suspect]
     Active Substance: TACROLIMUS
     Indication: PRODUCT USED FOR UNKNOWN INDICATION
     Dosage: UNK
     Route: 065
  6. METHOTREXATE [Concomitant]
     Active Substance: METHOTREXATE
     Indication: PROPHYLAXIS AGAINST GRAFT VERSUS HOST DISEASE
     Dosage: UNK
     Dates: start: 20120620, end: 20120629
  7. PREDONINE [Suspect]
     Active Substance: PREDNISOLONE\PREDNISOLONE ACETATE\PREDNISOLONE SODIUM SUCCINATE
     Indication: PROPHYLAXIS AGAINST GRAFT VERSUS HOST DISEASE
     Dosage: UNK
     Route: 065
     Dates: start: 20120620, end: 20121105
  8. CEFPIROME [Concomitant]
     Active Substance: CEFPIROME
     Indication: INFECTION PROPHYLAXIS
     Dosage: UNK
     Route: 065
     Dates: start: 20120616, end: 20120713
  9. FAMOTIDINE. [Concomitant]
     Active Substance: FAMOTIDINE
     Indication: PROPHYLAXIS AGAINST GASTROINTESTINAL ULCER
     Dosage: UNK
     Dates: start: 20120620, end: 20121105
  10. THYMOGLOBULINE [Suspect]
     Active Substance: LAPINE T-LYMPHOCYTE IMMUNE GLOBULIN
     Indication: BONE MARROW CONDITIONING REGIMEN
     Dosage: 15 MG, QD
     Route: 065
     Dates: start: 20120616, end: 20120617
  11. MICAFUNGIN SODIUM [Concomitant]
     Active Substance: MICAFUNGIN SODIUM
     Indication: INFECTION PROPHYLAXIS
     Dosage: UNK
     Dates: start: 20120619, end: 20120713
  12. THIOTEPA. [Concomitant]
     Active Substance: THIOTEPA
     Indication: NEUROBLASTOMA
     Dosage: UNK
     Dates: start: 20120616, end: 20120617

REACTIONS (2)
  - Cytomegalovirus viraemia [Not Recovered/Not Resolved]
  - Epstein-Barr virus infection [Not Recovered/Not Resolved]

NARRATIVE: CASE EVENT DATE: 20120904
